FAERS Safety Report 15854192 (Version 1)
Quarter: 2019Q1

REPORT INFORMATION
  Report Type: Spontaneous
  Country: US (occurrence: US)
  Receive Date: 20190121
  Receipt Date: 20190121
  Transmission Date: 20190417
  Serious: Yes (Other)
  Sender: FDA-Public Use
  Company Number: None

PATIENT
  Age: 48 Year
  Sex: Female
  Weight: 67.5 kg

DRUGS (5)
  1. LEVOTHYROXINE. [Suspect]
     Active Substance: LEVOTHYROXINE
     Indication: THYROID HORMONE REPLACEMENT THERAPY
     Route: 048
     Dates: start: 20170301, end: 20190114
  2. TYLENOL SINUS AND HEADACHE [Concomitant]
  3. LEVOTHYROXINE. [Suspect]
     Active Substance: LEVOTHYROXINE
     Indication: POST PROCEDURAL HYPOTHYROIDISM
     Route: 048
     Dates: start: 20170301, end: 20190114
  4. VITAMIN D [Concomitant]
     Active Substance: CHOLECALCIFEROL
  5. ALLEGRA-D [Concomitant]
     Active Substance: FEXOFENADINE\PSEUDOEPHEDRINE

REACTIONS (5)
  - Papilloedema [None]
  - Blood pressure increased [None]
  - Idiopathic intracranial hypertension [None]
  - Visual impairment [None]
  - Photophobia [None]

NARRATIVE: CASE EVENT DATE: 20180607
